FAERS Safety Report 4633251-1 (Version None)
Quarter: 2005Q2

REPORT INFORMATION
  Report Type: 
  Country: None (occurrence: None)
  Receive Date: 20050408
  Receipt Date: 20050401
  Transmission Date: 20051028
  Serious: Yes (Death, Other)
  Sender: FDA-Public Use
  Company Number: 200410737BNE

PATIENT
  Age: 76 Year
  Sex: Male

DRUGS (8)
  1. ASPIRIN [Suspect]
  2. CLOPIDOGREL [Suspect]
     Indication: ANGINA PECTORIS
     Dosage: 75 MG, TOTAL DAILY, ORAL
     Route: 048
  3. INSULIN [Concomitant]
  4. NICORANDIL [Concomitant]
  5. RAMIPRIL [Concomitant]
  6. FRUSEMIDE [Concomitant]
  7. SIMVASTATIN [Concomitant]
  8. DILTIAZEM [Concomitant]

REACTIONS (7)
  - BLOOD DISORDER [None]
  - COAGULOPATHY [None]
  - CORONARY ARTERY DISEASE [None]
  - DISSEMINATED INTRAVASCULAR COAGULATION [None]
  - INFECTION [None]
  - MULTI-ORGAN FAILURE [None]
  - POST PROCEDURAL HAEMORRHAGE [None]
